FAERS Safety Report 8548766-3 (Version None)
Quarter: 2012Q3

REPORT INFORMATION
  Report Type: 
  Country: None (occurrence: None)
  Receive Date: 20120730
  Receipt Date: 20120724
  Transmission Date: 20120928
  Serious: Yes (Other)
  Sender: FDA-Public Use
  Company Number: PHHY2012JP041655

PATIENT
  Age: 80 Year
  Sex: Male

DRUGS (5)
  1. NORVASC [Concomitant]
     Dosage: UNK
     Route: 048
  2. OLMESARTAN MEDOXOMIL [Concomitant]
     Route: 048
  3. TEGRETOL [Suspect]
     Indication: HYPOAESTHESIA
     Route: 048
     Dates: start: 20110501, end: 20120606
  4. TEGRETOL [Suspect]
     Dosage: UNK UKN, UNK
  5. CARVEDILOL [Concomitant]
     Route: 048

REACTIONS (2)
  - CONVULSION [None]
  - HYPONATRAEMIA [None]
